FAERS Safety Report 4727989-5 (Version None)
Quarter: 2005Q3

REPORT INFORMATION
  Report Type: 
  Country: None (occurrence: None)
  Receive Date: 20050725
  Receipt Date: 20050330
  Transmission Date: 20060218
  Serious: No
  Sender: FDA-Public Use
  Company Number: USA050394552

PATIENT
  Age: 23 Year
  Sex: Female
  Weight: 59 kg

DRUGS (4)
  1. STRATTERA [Suspect]
     Indication: ATTENTION DEFICIT/HYPERACTIVITY DISORDER
     Dates: start: 20040801, end: 20050301
  2. HUMATROPE [Concomitant]
  3. ABILIFY (ARIPRAZOLE) [Concomitant]
  4. WELLBUTRIN [Concomitant]

REACTIONS (2)
  - DISTURBANCE IN ATTENTION [None]
  - SCOTOMA [None]
